FAERS Safety Report 14676321 (Version 1)
Quarter: 2018Q1

REPORT INFORMATION
  Report Type: Spontaneous
  Country: JP (occurrence: JP)
  Receive Date: 20180323
  Receipt Date: 20180323
  Transmission Date: 20180509
  Serious: Yes (Hospitalization)
  Sender: FDA-Public Use
  Company Number: JP-ALLERGAN-1815084US

PATIENT
  Sex: Female

DRUGS (1)
  1. BOTOX [Suspect]
     Active Substance: ONABOTULINUMTOXINA
     Indication: BLEPHAROSPASM
     Dosage: UNK, SINGLE EVERY THREE MONTHS
     Route: 030
     Dates: start: 2005, end: 2005

REACTIONS (4)
  - Dizziness [Recovered/Resolved]
  - Eye disorder [Recovered/Resolved]
  - Fall [Recovered/Resolved]
  - Therapeutic response decreased [Unknown]
